FAERS Safety Report 7326435-5 (Version None)
Quarter: 2011Q1

REPORT INFORMATION
  Report Type: 
  Country: None (occurrence: None)
  Receive Date: 20110302
  Receipt Date: 20110218
  Transmission Date: 20110831
  Serious: Yes (Life-Threatening)
  Sender: FDA-Public Use
  Company Number: JP-ELI_LILLY_AND_COMPANY-JP201102005370

PATIENT
  Age: 76 Year
  Sex: Female

DRUGS (1)
  1. GEMZAR [Suspect]
     Indication: PANCREATIC CARCINOMA
     Dosage: 1200 MG, UNK
     Route: 042
     Dates: start: 20100513, end: 20110127

REACTIONS (5)
  - PROCEDURAL COMPLICATION [None]
  - STRESS CARDIOMYOPATHY [None]
  - ANAEMIA [None]
  - CARDIAC FAILURE [None]
  - PULMONARY OEDEMA [None]
